FAERS Safety Report 18409836 (Version 2)
Quarter: 2021Q1

REPORT INFORMATION
  Report Type: Spontaneous
  Country: GR (occurrence: GR)
  Receive Date: 20201021
  Receipt Date: 20210226
  Transmission Date: 20210419
  Serious: Yes (Hospitalization, Other)
  Sender: FDA-Public Use
  Company Number: GR-PFIZER INC-2006035033

PATIENT
  Sex: Female

DRUGS (2)
  1. RANITIDINE. [Concomitant]
     Active Substance: RANITIDINE
     Dosage: 300 MG, 1X/DAY
  2. MEDROL [Suspect]
     Active Substance: METHYLPREDNISOLONE
     Indication: ILL-DEFINED DISORDER
     Dosage: 32 MG, 1X/DAY
     Route: 048

REACTIONS (1)
  - Diverticular perforation [Unknown]
